FAERS Safety Report 16437836 (Version 1)
Quarter: 2019Q2

REPORT INFORMATION
  Report Type: Spontaneous
  Country: US (occurrence: US)
  Receive Date: 20190616
  Receipt Date: 20190616
  Transmission Date: 20190711
  Serious: No
  Sender: FDA-Public Use
  Company Number: US-009507513-1906USA005177

PATIENT
  Sex: Female

DRUGS (9)
  1. GANIRELIX ACETATE INJECTION [Suspect]
     Active Substance: GANIRELIX ACETATE
     Indication: INFERTILITY FEMALE
     Dosage: 250 MILLIGRAM, QD
     Route: 058
     Dates: start: 20190223
  2. ASPIRIN. [Concomitant]
     Active Substance: ASPIRIN
  3. METHYLPREDNISOLONE. [Concomitant]
     Active Substance: METHYLPREDNISOLONE
  4. PROGESTERONE. [Concomitant]
     Active Substance: PROGESTERONE
  5. MINIVELLE [Concomitant]
     Active Substance: ESTRADIOL
  6. ESTRADIOL. [Concomitant]
     Active Substance: ESTRADIOL
  7. DIAZEPAM. [Concomitant]
     Active Substance: DIAZEPAM
  8. AZITHROMYCIN ANHYDROUS. [Concomitant]
     Active Substance: AZITHROMYCIN ANHYDROUS
  9. FOLLISTIM [Suspect]
     Active Substance: FOLLITROPIN
     Indication: INFERTILITY FEMALE
     Dosage: 150 UNITS, QD (10-14 DAYS)
     Route: 058
     Dates: start: 20190202

REACTIONS (1)
  - Rash [Unknown]
